FAERS Safety Report 4834997-2 (Version None)
Quarter: 2005Q4

REPORT INFORMATION
  Report Type: 
  Country: None (occurrence: None)
  Receive Date: 20051114
  Receipt Date: 20051102
  Transmission Date: 20060501
  Serious: Yes (Other)
  Sender: FDA-Public Use
  Company Number: 2005150443

PATIENT
  Age: 33 Year
  Sex: Male
  Weight: 136.0791 kg

DRUGS (1)
  1. UNISOM [Suspect]
     Indication: INSOMNIA
     Dosage: 16 TABLETS ONCE, ORAL
     Route: 048
     Dates: start: 20051101, end: 20051101

REACTIONS (1)
  - INTENTIONAL OVERDOSE [None]
